FAERS Safety Report 6389725-9 (Version None)
Quarter: 2009Q4

REPORT INFORMATION
  Report Type: 
  Country: None (occurrence: None)
  Receive Date: 20091006
  Receipt Date: 20090930
  Transmission Date: 20100525
  Serious: Yes (Death, Life-Threatening, Hospitalization)
  Sender: FDA-Public Use
  Company Number: JP-BAYER-200913073BYL

PATIENT
  Age: 78 Year
  Sex: Male
  Weight: 56 kg

DRUGS (3)
  1. NEXAVAR [Suspect]
     Indication: RENAL CELL CARCINOMA STAGE IV
     Dosage: UNIT DOSE: 200 MG
     Route: 048
     Dates: start: 20090205
  2. MORPHINE, DERIVATIVES AND PREPARATIONS [Suspect]
     Indication: DRUG USE FOR UNKNOWN INDICATION
     Route: 065
  3. PASIL [Concomitant]
     Route: 065
     Dates: start: 20090825

REACTIONS (4)
  - DEATH [None]
  - DECREASED APPETITE [None]
  - LUNG DISORDER [None]
  - WEIGHT DECREASED [None]
